FAERS Safety Report 21267014 (Version 1)
Quarter: 2022Q3

REPORT INFORMATION
  Report Type: Report from Study
  Country: US (occurrence: US)
  Receive Date: 20220829
  Receipt Date: 20220829
  Transmission Date: 20221026
  Serious: Yes (Death, Hospitalization)
  Sender: FDA-Public Use
  Company Number: US-BAYER-2022A119526

PATIENT
  Age: 73 Year
  Sex: Female
  Weight: 68.481 kg

DRUGS (6)
  1. ADEMPAS [Suspect]
     Active Substance: RIOCIGUAT
     Indication: Pulmonary arterial hypertension
     Dosage: UNK
     Dates: start: 20220228
  2. ADEMPAS [Suspect]
     Active Substance: RIOCIGUAT
     Indication: Pulmonary arterial hypertension
     Dosage: 2 MG, TID
     Route: 048
  3. TYVASO [Concomitant]
     Active Substance: TREPROSTINIL
  4. OPSUMIT [Concomitant]
     Active Substance: MACITENTAN
  5. WARFARIN [Concomitant]
     Active Substance: WARFARIN
  6. AMLODIPINE [Concomitant]
     Active Substance: AMLODIPINE BESYLATE

REACTIONS (2)
  - Death [Fatal]
  - Hospitalisation [None]

NARRATIVE: CASE EVENT DATE: 20220819
